FAERS Safety Report 6923664-7 (Version None)
Quarter: 2010Q3

REPORT INFORMATION
  Report Type: 
  Country: None (occurrence: None)
  Receive Date: 20100813
  Receipt Date: 20100804
  Transmission Date: 20110219
  Serious: Yes (Other)
  Sender: FDA-Public Use
  Company Number: B0659121A

PATIENT
  Sex: Female

DRUGS (10)
  1. PAXIL [Suspect]
     Indication: DEPRESSION
     Dosage: 40MG PER DAY
     Route: 048
     Dates: start: 20050114
  2. AMOXAN [Suspect]
     Indication: DEPRESSION
     Route: 048
     Dates: start: 20050114
  3. SOLANAX [Concomitant]
     Indication: ANXIETY
     Dosage: 1.35MG PER DAY
     Route: 048
  4. LEXOTAN [Concomitant]
     Indication: ANXIETY
     Dosage: 6MG PER DAY
     Route: 048
  5. EVAMYL [Concomitant]
     Indication: INSOMNIA
     Dosage: 2MG PER DAY
     Route: 048
  6. LENDORMIN [Concomitant]
     Indication: INSOMNIA
     Dosage: .25MG PER DAY
     Route: 048
  7. METHYCOBAL [Concomitant]
     Dosage: 1.5MG PER DAY
     Route: 048
  8. CHINESE MEDICINE [Concomitant]
     Indication: THIRST
     Dosage: 9G PER DAY
     Route: 048
  9. CHINESE MEDICINE [Concomitant]
     Dosage: 7.5MG PER DAY
     Route: 048
  10. LUPRAC [Concomitant]
     Dosage: 8MG PER DAY
     Route: 048

REACTIONS (3)
  - AFFECT LABILITY [None]
  - AGGRESSION [None]
  - IRRITABILITY [None]
